FAERS Safety Report 16277625 (Version 2)
Quarter: 2019Q3

REPORT INFORMATION
  Report Type: Spontaneous
  Country: CO (occurrence: CO)
  Receive Date: 20190506
  Receipt Date: 20190724
  Transmission Date: 20191004
  Serious: Yes (Hospitalization, Other)
  Sender: FDA-Public Use
  Company Number: CO-PFIZER INC-2019155084

PATIENT
  Age: 62 Year
  Sex: Female

DRUGS (3)
  1. REAMPLA [Suspect]
     Active Substance: PALBOCICLIB
     Dosage: 125 MG, UNK
     Route: 048
     Dates: start: 201903, end: 201904
  2. FULVESTRANT. [Concomitant]
     Active Substance: FULVESTRANT
     Dosage: UNK, MONTHLY
  3. REAMPLA [Suspect]
     Active Substance: PALBOCICLIB
     Indication: BREAST CANCER
     Dosage: 125 MG, UNK
     Route: 048
     Dates: start: 201901, end: 201904

REACTIONS (12)
  - Malaise [Unknown]
  - Influenza [Unknown]
  - Pain [Unknown]
  - Back pain [Unknown]
  - Bone pain [Unknown]
  - Pruritus [Unknown]
  - Dyspnoea exertional [Unknown]
  - Choking [Unknown]
  - Visual acuity reduced [Not Recovered/Not Resolved]
  - Pain in extremity [Unknown]
  - Chest pain [Unknown]
  - Listless [Unknown]

NARRATIVE: CASE EVENT DATE: 20190425
